FAERS Safety Report 6902309-6 (Version None)
Quarter: 2010Q3

REPORT INFORMATION
  Report Type: 
  Country: None (occurrence: None)
  Receive Date: 20100803
  Receipt Date: 20080515
  Transmission Date: 20110219
  Serious: No
  Sender: FDA-Public Use
  Company Number: US-PFIZER INC-2008042522

PATIENT
  Sex: Male

DRUGS (5)
  1. LYRICA [Suspect]
     Dates: start: 20061101
  2. NAPROXEN [Concomitant]
  3. PREVACID [Concomitant]
  4. ALLEGRA [Concomitant]
  5. NASACORT [Concomitant]

REACTIONS (1)
  - PLATELET COUNT DECREASED [None]
